FAERS Safety Report 15056540 (Version 1)
Quarter: 2018Q2

REPORT INFORMATION
  Report Type: Spontaneous
  Country: US (occurrence: US)
  Receive Date: 20180623
  Receipt Date: 20180623
  Transmission Date: 20180711
  Serious: No
  Sender: FDA-Public Use
  Company Number: US-GLENMARK PHARMACEUTICALS-2018GMK033869

PATIENT

DRUGS (1)
  1. MUPIROCIN. [Suspect]
     Active Substance: MUPIROCIN
     Indication: NEOPLASM
     Dosage: UNK, PRN
     Route: 065
     Dates: start: 20180205

REACTIONS (2)
  - No adverse event [Unknown]
  - Drug effective for unapproved indication [Unknown]
